FAERS Safety Report 17609253 (Version 1)
Quarter: 2020Q2

REPORT INFORMATION
  Report Type: Spontaneous
  Country: GB (occurrence: GB)
  Receive Date: 20200401
  Receipt Date: 20200401
  Transmission Date: 20200713
  Serious: Yes (Congenital Anomaly)
  Sender: FDA-Public Use
  Company Number: GB-TEVA-2020-GB-1215186

PATIENT
  Sex: Female

DRUGS (5)
  1. PROMETHAZINE [Concomitant]
     Active Substance: PROMETHAZINE HYDROCHLORIDE
     Indication: INSOMNIA
     Route: 064
  2. LAMOTRIGINE. [Suspect]
     Active Substance: LAMOTRIGINE
     Indication: ANXIETY
     Dosage: FIRST 5 WEEKS OF PREGNANCY
     Route: 064
  3. OMEPRAZOLE. [Concomitant]
     Active Substance: OMEPRAZOLE
     Indication: DYSPEPSIA
     Route: 064
  4. DIAZEPAM. [Suspect]
     Active Substance: DIAZEPAM
     Indication: SLEEP DISORDER
     Route: 064
  5. LOFEPRAMINE [Suspect]
     Active Substance: LOFEPRAMINE
     Indication: ANXIETY
     Route: 064

REACTIONS (3)
  - Deafness neurosensory [Unknown]
  - Vestibular disorder [Unknown]
  - Foetal exposure during pregnancy [Unknown]
